FAERS Safety Report 6306494-9 (Version None)
Quarter: 2009Q3

REPORT INFORMATION
  Report Type: 
  Country: None (occurrence: None)
  Receive Date: 20090810
  Receipt Date: 20090731
  Transmission Date: 20100115
  Serious: Yes (Death)
  Sender: FDA-Public Use
  Company Number: ADR12612009

PATIENT
  Sex: Female

DRUGS (2)
  1. METFORMIN HYDROCHLORIDE [Suspect]
     Dosage: 1000MG-2/ 1 DAYS ORAL
     Route: 048
  2. AMISULPRIDE [Concomitant]

REACTIONS (4)
  - DRUG TOXICITY [None]
  - MULTIPLE DRUG OVERDOSE [None]
  - PULMONARY CONGESTION [None]
  - RENAL IMPAIRMENT [None]
